FAERS Safety Report 9791863 (Version 1)
Quarter: 2014Q1

REPORT INFORMATION
  Report Type: Spontaneous
  Country: US (occurrence: US)
  Receive Date: 20140102
  Receipt Date: 20140102
  Transmission Date: 20141002
  Serious: No
  Sender: FDA-Public Use
  Company Number: US-PFIZER INC-2013374263

PATIENT
  Age: 10 Year
  Sex: Male
  Weight: 41.72 kg

DRUGS (2)
  1. QUILLIVANT XR [Suspect]
     Indication: ATTENTION DEFICIT/HYPERACTIVITY DISORDER
     Dosage: 20 MG (BY TAKING 4ML), 1X/DAY
     Route: 048
     Dates: start: 201311, end: 2013
  2. QUILLIVANT XR [Suspect]
     Dosage: 30 MG (BY TAKING 6ML), 1X/DAY
     Route: 048
     Dates: start: 2013

REACTIONS (5)
  - Disturbance in attention [Unknown]
  - Feeling jittery [Unknown]
  - Drug ineffective [Unknown]
  - Increased appetite [Unknown]
  - Weight increased [Unknown]
